FAERS Safety Report 25234103 (Version 1)
Quarter: 2025Q2

REPORT INFORMATION
  Report Type: Spontaneous
  Country: US (occurrence: US)
  Receive Date: 20250424
  Receipt Date: 20250424
  Transmission Date: 20250716
  Serious: Yes (Life-Threatening, Hospitalization, Other)
  Sender: BRISTOL-MYERS SQUIBB COMPANY
  Company Number: US-BRISTOL-MYERS SQUIBB COMPANY-2025-058636

PATIENT
  Age: 72 Year
  Sex: Male
  Weight: 83.9 kg

DRUGS (1)
  1. BREYANZI [Suspect]
     Active Substance: LISOCABTAGENE MARALEUCEL
     Indication: Chronic lymphocytic leukaemia
     Route: 042
     Dates: start: 20241223, end: 20241223

REACTIONS (10)
  - Immune effector cell-associated neurotoxicity syndrome [Unknown]
  - Blood creatinine increased [Unknown]
  - Liver function test increased [Unknown]
  - Chest pain [Unknown]
  - Troponin increased [Unknown]
  - Agitation [Unknown]
  - Oxygen saturation decreased [Unknown]
  - Hypotension [Unknown]
  - Cytokine release syndrome [Recovered/Resolved]
  - Cytomegalovirus infection [Unknown]

NARRATIVE: CASE EVENT DATE: 20241225
